FAERS Safety Report 9528507 (Version 2)
Quarter: 2013Q3

REPORT INFORMATION
  Report Type: Spontaneous
  Country: JP (occurrence: JP)
  Receive Date: 20130917
  Receipt Date: 20130917
  Transmission Date: 20140515
  Serious: Yes (Other)
  Sender: FDA-Public Use
  Company Number: JP-PFIZER INC-2013256209

PATIENT
  Age: 66 Year
  Sex: Female
  Weight: 55 kg

DRUGS (4)
  1. LYRICA [Suspect]
     Indication: PAIN
     Dosage: 75MG/DAY
     Route: 048
     Dates: start: 20130903, end: 20130903
  2. NORVASC [Concomitant]
  3. LIPITOR [Concomitant]
  4. METHYCOBAL [Concomitant]

REACTIONS (10)
  - Gait disturbance [Recovering/Resolving]
  - Speech disorder [Not Recovered/Not Resolved]
  - Vertigo [Recovering/Resolving]
  - Hypoaesthesia [Not Recovered/Not Resolved]
  - Speech disorder [Not Recovered/Not Resolved]
  - Feeling abnormal [Not Recovered/Not Resolved]
  - Back pain [Not Recovered/Not Resolved]
  - Balance disorder [Recovering/Resolving]
  - Listless [Not Recovered/Not Resolved]
  - Malaise [Not Recovered/Not Resolved]
